FAERS Safety Report 19897561 (Version 1)
Quarter: 2021Q3

REPORT INFORMATION
  Report Type: Spontaneous
  Country: US (occurrence: US)
  Receive Date: 20210929
  Receipt Date: 20210929
  Transmission Date: 20211014
  Serious: Yes (Hospitalization, Other)
  Sender: FDA-Public Use
  Company Number: US-ZHEJIANG JUTAI PHARMACEUTICALS-000008

PATIENT
  Age: 27 Year
  Sex: Female

DRUGS (1)
  1. BUPROPION. [Suspect]
     Active Substance: BUPROPION
     Indication: DEPRESSION
     Dosage: INJECTING BUPROPION FOR A COUPLE OF DAYS
     Route: 042

REACTIONS (3)
  - Swelling [Unknown]
  - Tachycardia [Unknown]
  - Product use issue [Unknown]
